FAERS Safety Report 7561675-1 (Version None)
Quarter: 2011Q2

REPORT INFORMATION
  Report Type: 
  Country: None (occurrence: None)
  Receive Date: 20110621
  Receipt Date: 20100519
  Transmission Date: 20111010
  Serious: No
  Sender: FDA-Public Use
  Company Number: GB-ASTRAZENECA-2010SE21827

PATIENT
  Age: 7 Year
  Sex: Male

DRUGS (6)
  1. CLONIDINE [Concomitant]
  2. RHINOCORT [Suspect]
     Indication: MULTIPLE ALLERGIES
     Route: 045
     Dates: start: 20100423, end: 20100507
  3. SEROQUEL [Suspect]
     Indication: DEPRESSION
     Route: 048
  4. SEROQUEL [Suspect]
     Indication: OPPOSITIONAL DEFIANT DISORDER
     Route: 048
  5. ZOLOFT [Concomitant]
  6. FOCALIN [Concomitant]

REACTIONS (3)
  - ANGER [None]
  - HOSTILITY [None]
  - AGITATION [None]
